FAERS Safety Report 11129017 (Version 2)
Quarter: 2015Q4

REPORT INFORMATION
  Report Type: Spontaneous
  Country: GB (occurrence: GB)
  Receive Date: 20150521
  Receipt Date: 20151027
  Transmission Date: 20160304
  Serious: Yes (Hospitalization, Other)
  Sender: FDA-Public Use
  Company Number: GB-ASTRAZENECA-2015SE44770

PATIENT
  Age: 67 Year
  Sex: Female

DRUGS (15)
  1. OMEPRAZOLE MAGNESIUM. [Suspect]
     Active Substance: OMEPRAZOLE MAGNESIUM
     Indication: GASTROINTESTINAL DISORDER
     Route: 048
  2. OMEPRAZOLE MAGNESIUM. [Interacting]
     Active Substance: OMEPRAZOLE MAGNESIUM
     Indication: HELICOBACTER INFECTION
     Route: 048
  3. OMEPRAZOLE MAGNESIUM. [Interacting]
     Active Substance: OMEPRAZOLE MAGNESIUM
     Indication: GASTROINTESTINAL DISORDER
     Route: 048
  4. SERTRALINE [Interacting]
     Active Substance: SERTRALINE HYDROCHLORIDE
     Indication: DEPRESSION
     Dosage: STARTED A FEW WEEKS PREVIOUSLY
  5. TEMAZEPAM. [Concomitant]
     Active Substance: TEMAZEPAM
  6. OMEPRAZOLE MAGNESIUM. [Interacting]
     Active Substance: OMEPRAZOLE MAGNESIUM
     Indication: GASTROOESOPHAGEAL REFLUX PROPHYLAXIS
     Route: 048
  7. OMEPRAZOLE MAGNESIUM. [Interacting]
     Active Substance: OMEPRAZOLE MAGNESIUM
     Indication: GASTROINTESTINAL DISORDER
     Route: 048
  8. OMEPRAZOLE MAGNESIUM. [Interacting]
     Active Substance: OMEPRAZOLE MAGNESIUM
     Indication: HELICOBACTER INFECTION
     Route: 048
  9. BENDROFLUAZIDE [Interacting]
     Active Substance: BENDROFLUMETHIAZIDE
  10. OMEPRAZOLE MAGNESIUM. [Interacting]
     Active Substance: OMEPRAZOLE MAGNESIUM
     Indication: HELICOBACTER INFECTION
     Route: 048
  11. OMEPRAZOLE MAGNESIUM. [Interacting]
     Active Substance: OMEPRAZOLE MAGNESIUM
     Indication: GASTROINTESTINAL DISORDER
     Route: 048
     Dates: start: 20140317, end: 20140323
  12. OMEPRAZOLE MAGNESIUM. [Interacting]
     Active Substance: OMEPRAZOLE MAGNESIUM
     Indication: GASTROOESOPHAGEAL REFLUX PROPHYLAXIS
     Route: 048
  13. OMEPRAZOLE MAGNESIUM. [Interacting]
     Active Substance: OMEPRAZOLE MAGNESIUM
     Indication: GASTROOESOPHAGEAL REFLUX PROPHYLAXIS
     Route: 048
     Dates: start: 20140317, end: 20140323
  14. OMEPRAZOLE MAGNESIUM. [Interacting]
     Active Substance: OMEPRAZOLE MAGNESIUM
     Indication: HELICOBACTER INFECTION
     Route: 048
     Dates: start: 20140317, end: 20140323
  15. OMEPRAZOLE MAGNESIUM. [Interacting]
     Active Substance: OMEPRAZOLE MAGNESIUM
     Indication: GASTROOESOPHAGEAL REFLUX PROPHYLAXIS
     Route: 048

REACTIONS (5)
  - Urinary tract infection [Recovering/Resolving]
  - Acute psychosis [Not Recovered/Not Resolved]
  - Hyponatraemia [Recovered/Resolved]
  - Drug interaction [Unknown]
  - Seizure [Recovering/Resolving]

NARRATIVE: CASE EVENT DATE: 20140310
